FAERS Safety Report 12970115 (Version 1)
Quarter: 2016Q4

REPORT INFORMATION
  Report Type: Report from Study
  Country: CA (occurrence: CA)
  Receive Date: 20161123
  Receipt Date: 20161123
  Transmission Date: 20170207
  Serious: Yes (Other)
  Sender: FDA-Public Use
  Company Number: CA-JNJFOC-20150416830

PATIENT
  Age: 27 Year
  Sex: Female
  Weight: 108.86 kg

DRUGS (1)
  1. SIMPONI [Suspect]
     Active Substance: GOLIMUMAB
     Indication: RHEUMATOID ARTHRITIS
     Route: 058
     Dates: start: 20120628

REACTIONS (7)
  - Weight increased [Unknown]
  - Skin hypopigmentation [Unknown]
  - Mental disorder [Unknown]
  - Intentional self-injury [Unknown]
  - Depression [Unknown]
  - Blood glucose increased [Unknown]
  - Rheumatoid arthritis [Recovering/Resolving]

NARRATIVE: CASE EVENT DATE: 201206
